FAERS Safety Report 12192041 (Version 1)
Quarter: 2016Q1

REPORT INFORMATION
  Report Type: Spontaneous
  Country: US (occurrence: US)
  Receive Date: 20160318
  Receipt Date: 20160318
  Transmission Date: 20160526
  Serious: Yes (Disabling, Other)
  Sender: FDA-Public Use
  Company Number: PHHY2016US033161

PATIENT
  Age: 54 Year
  Sex: Male

DRUGS (14)
  1. PHENYLEPHRINE [Suspect]
     Active Substance: PHENYLEPHRINE\PHENYLEPHRINE HYDROCHLORIDE
     Indication: MEAN ARTERIAL PRESSURE
     Dosage: 0.4 MCG/KG/MIN
     Route: 065
  2. DOBUTAMINE [Suspect]
     Active Substance: DOBUTAMINE\DOBUTAMINE HYDROCHLORIDE
     Indication: MEAN ARTERIAL PRESSURE
     Dosage: 7.5 MCG/KG/MIN
     Route: 065
  3. SERTRALINE [Concomitant]
     Active Substance: SERTRALINE HYDROCHLORIDE
     Indication: SUBARACHNOID HAEMORRHAGE
     Route: 065
  4. NOREPINEPHRINE [Suspect]
     Active Substance: NOREPINEPHRINE\NOREPINEPHRINE BITARTRATE
     Dosage: 0.4 MCG/KG/MIN
  5. SODIUM CHLORIDE. [Concomitant]
     Active Substance: SODIUM CHLORIDE
     Indication: FLUID REPLACEMENT
  6. NOREPINEPHRINE [Suspect]
     Active Substance: NOREPINEPHRINE\NOREPINEPHRINE BITARTRATE
     Dosage: 0.3 MCG/KG/MIN
     Route: 065
  7. VERAPAMIL [Suspect]
     Active Substance: VERAPAMIL HYDROCHLORIDE
     Indication: PERIPHERAL VASCULAR DISORDER
     Dosage: 5 MG
     Route: 013
  8. LORAZEPAM. [Concomitant]
     Active Substance: LORAZEPAM
     Indication: SUBARACHNOID HAEMORRHAGE
     Route: 065
  9. NOREPINEPHRINE [Suspect]
     Active Substance: NOREPINEPHRINE\NOREPINEPHRINE BITARTRATE
     Indication: MEAN ARTERIAL PRESSURE
     Dosage: 0.2 MCG/KG/MIN
     Route: 065
  10. CLOZAPINE. [Interacting]
     Active Substance: CLOZAPINE
     Indication: SUBARACHNOID HAEMORRHAGE
     Route: 065
  11. EPINEPHRINE. [Suspect]
     Active Substance: EPINEPHRINE
     Indication: MEAN ARTERIAL PRESSURE
     Dosage: 0.15 MCG/KG/MIN
     Route: 065
  12. VASOPRESSIN. [Interacting]
     Active Substance: VASOPRESSIN
     Indication: MEAN ARTERIAL PRESSURE
     Dosage: 0.04 U
     Route: 065
  13. EPINEPHRINE. [Suspect]
     Active Substance: EPINEPHRINE
     Dosage: 0.1 MCG/KG/MIN
     Route: 065
  14. NOREPINEPHRINE [Suspect]
     Active Substance: NOREPINEPHRINE\NOREPINEPHRINE BITARTRATE
     Dosage: 0.5 MCG/KG/MIN

REACTIONS (4)
  - Cerebral ischaemia [Unknown]
  - Aphasia [Unknown]
  - Hemiparesis [Unknown]
  - Drug interaction [Unknown]
